FAERS Safety Report 11756017 (Version 1)
Quarter: 2015Q4

REPORT INFORMATION
  Report Type: Spontaneous
  Country: US (occurrence: US)
  Receive Date: 20151119
  Receipt Date: 20151119
  Transmission Date: 20160304
  Serious: Yes (Other)
  Sender: FDA-Public Use
  Company Number: US-PFIZER INC-2015387826

PATIENT
  Age: 82 Year
  Sex: Male

DRUGS (1)
  1. ALPROSTADIL. [Suspect]
     Active Substance: ALPROSTADIL
     Indication: ERECTILE DYSFUNCTION
     Dosage: 20 ?G, (MAXIMUM THREE TIMES A WEEK)
     Route: 017

REACTIONS (2)
  - Blindness [Recovered/Resolved]
  - Macular oedema [Recovered/Resolved]
